FAERS Safety Report 6098348-0 (Version None)
Quarter: 2009Q1

REPORT INFORMATION
  Report Type: 
  Country: None (occurrence: None)
  Receive Date: 20090302
  Receipt Date: 20090227
  Transmission Date: 20090719
  Serious: Yes (Death, Other)
  Sender: FDA-Public Use
  Company Number: CN-PFIZER INC-2009160322

PATIENT

DRUGS (3)
  1. ZYVOX [Suspect]
     Indication: STAPHYLOCOCCAL INFECTION
     Dosage: 600 MG, 2X/DAY
     Route: 042
     Dates: start: 20090115, end: 20090121
  2. TIENAM [Concomitant]
  3. SULPERAZON [Concomitant]
     Route: 042
     Dates: start: 20090112, end: 20090114

REACTIONS (2)
  - PLATELET COUNT DECREASED [None]
  - VENTRICULAR FIBRILLATION [None]
